FAERS Safety Report 19089336 (Version 2)
Quarter: 2021Q2

REPORT INFORMATION
  Report Type: Spontaneous
  Country: GB (occurrence: GB)
  Receive Date: 20210403
  Receipt Date: 20210427
  Transmission Date: 20210717
  Serious: Yes (Other)
  Sender: FDA-Public Use
  Company Number: GB-AUROBINDO-AUR-APL-2021-012765

PATIENT
  Age: 65 Year
  Sex: Female
  Weight: 59.87 kg

DRUGS (3)
  1. LOPERAMIDE 2 MG CAPSULES, HARD [Suspect]
     Active Substance: LOPERAMIDE
     Indication: COLITIS ULCERATIVE
     Dosage: 1 DOSAGE FORM
     Route: 048
     Dates: start: 20210104, end: 20210301
  2. LOPERAMIDE 2 MG CAPSULES, HARD [Suspect]
     Active Substance: LOPERAMIDE
     Indication: DIARRHOEA
  3. OCTASA [Concomitant]
     Active Substance: MESALAMINE
     Indication: ILL-DEFINED DISORDER
     Dosage: UNK
     Route: 048

REACTIONS (4)
  - Diarrhoea [Recovered/Resolved]
  - Off label use [Unknown]
  - Product substitution issue [Unknown]
  - Contraindicated product administered [Unknown]

NARRATIVE: CASE EVENT DATE: 20210129
